FAERS Safety Report 7558512-8 (Version None)
Quarter: 2011Q2

REPORT INFORMATION
  Report Type: 
  Country: None (occurrence: None)
  Receive Date: 20110620
  Receipt Date: 20110614
  Transmission Date: 20111010
  Serious: Yes (Hospitalization)
  Sender: FDA-Public Use
  Company Number: US-GILEAD-2011-0040183

PATIENT
  Sex: Female
  Weight: 132 kg

DRUGS (31)
  1. VALSARTAN [Concomitant]
  2. INSULIN [Concomitant]
  3. MAALOX [Concomitant]
  4. VITAMIN B-12 [Concomitant]
  5. LETAIRIS [Suspect]
     Indication: PULMONARY HYPERTENSION
     Route: 048
     Dates: start: 20110513
  6. ALBUTEROL SULFATE AUTOHALER [Concomitant]
  7. NOVOLOG [Concomitant]
  8. ASPIRIN [Concomitant]
  9. BUDESONIDE [Concomitant]
  10. MUCINEX [Concomitant]
  11. ACETAMINOPHEN AND HYDROCODONE BITARTRATE [Concomitant]
  12. PREDNISONE [Concomitant]
  13. ALLEGRA [Concomitant]
  14. VITAMIN B-3 [Concomitant]
  15. HYDROCHLOROTHIAZIDE [Concomitant]
  16. NASONEX [Concomitant]
  17. REGLAN [Concomitant]
  18. TRIAMCINOLONE ACETONIDE [Concomitant]
  19. ATORVASTATIN [Concomitant]
  20. VITAMIN D [Concomitant]
  21. VITAMIN E [Concomitant]
  22. ENALAPRIL MALEATE [Concomitant]
  23. PRILOSEC [Concomitant]
  24. SUCRALFATE [Concomitant]
  25. LEVOTHYROXINE SODIUM [Concomitant]
  26. LIDOCAINE [Concomitant]
  27. MONTELUKAST SODIUM [Concomitant]
  28. OXYGEN THERAPY [Concomitant]
  29. FUROSEMIDE [Concomitant]
  30. NYSTATIN [Concomitant]
  31. CLOTRIMAZOLE [Concomitant]

REACTIONS (1)
  - CARDIAC DISORDER [None]
